FAERS Safety Report 25877505 (Version 1)
Quarter: 2025Q4

REPORT INFORMATION
  Report Type: Spontaneous
  Country: JP (occurrence: JP)
  Receive Date: 20251003
  Receipt Date: 20251003
  Transmission Date: 20260118
  Serious: Yes (Other)
  Sender: PFIZER
  Company Number: JP-PFIZER INC-PV202500116992

PATIENT
  Age: 46 Year
  Sex: Male

DRUGS (1)
  1. LORBRENA [Suspect]
     Active Substance: LORLATINIB
     Indication: Lung neoplasm malignant
     Dosage: 75 MG, DAILY
     Route: 048

REACTIONS (7)
  - Alcohol poisoning [Unknown]
  - Delirium [Unknown]
  - Lung neoplasm malignant [Unknown]
  - Malignant neoplasm progression [Unknown]
  - Nervous system disorder [Unknown]
  - Poriomania [Unknown]
  - Cognitive disorder [Unknown]
